FAERS Safety Report 25039686 (Version 1)
Quarter: 2025Q1

REPORT INFORMATION
  Report Type: Spontaneous
  Country: IT (occurrence: IT)
  Receive Date: 20250305
  Receipt Date: 20250305
  Transmission Date: 20250409
  Serious: Yes (Other)
  Sender: BRISTOL-MYERS SQUIBB COMPANY
  Company Number: IT-BRISTOL-MYERS SQUIBB COMPANY-2025-030436

PATIENT

DRUGS (1)
  1. LUSPATERCEPT [Suspect]
     Active Substance: LUSPATERCEPT
     Indication: Thalassaemia beta
     Dates: start: 2021

REACTIONS (2)
  - Hypertension [Recovering/Resolving]
  - Cholecystitis [Unknown]
